FAERS Safety Report 8340432-2 (Version None)
Quarter: 2012Q2

REPORT INFORMATION
  Report Type: 
  Country: None (occurrence: None)
  Receive Date: 20120507
  Receipt Date: 20120507
  Transmission Date: 20120825
  Serious: Yes (Hospitalization, Other)
  Sender: FDA-Public Use
  Company Number: None

PATIENT
  Age: 57 Year
  Sex: Female
  Weight: 56.245 kg

DRUGS (1)
  1. LEVOFLOXACIN [Suspect]
     Indication: BRONCHITIS
     Dosage: |DOSAGETEXT: ONE TABLET||STRENGTH: 750 MG||FREQ: DAILY||ROUTE: ORAL|
     Route: 048
     Dates: start: 20120209, end: 20120213

REACTIONS (5)
  - IMPAIRED WORK ABILITY [None]
  - MUSCLE DISORDER [None]
  - TENDON RUPTURE [None]
  - CONTUSION [None]
  - GAIT DISTURBANCE [None]
